FAERS Safety Report 13538676 (Version 1)
Quarter: 2017Q2

REPORT INFORMATION
  Report Type: Report from Study
  Country: NL (occurrence: NL)
  Receive Date: 20170512
  Receipt Date: 20170512
  Transmission Date: 20170830
  Serious: Yes (Hospitalization, Other)
  Sender: FDA-Public Use
  Company Number: NL-BRISTOL-MYERS SQUIBB COMPANY-BMS-2016-111672

PATIENT
  Age: 47 Year

DRUGS (2)
  1. IPILIMUMAB [Suspect]
     Active Substance: IPILIMUMAB
     Indication: MALIGNANT MELANOMA
     Dosage: 230 MG, Q3WK
     Route: 042
     Dates: start: 20161122, end: 20161213
  2. NIVOLUMAB [Suspect]
     Active Substance: NIVOLUMAB
     Indication: MALIGNANT MELANOMA
     Dosage: 77 MG, Q3WK
     Route: 042
     Dates: start: 20161122, end: 20161213

REACTIONS (3)
  - Back pain [Recovered/Resolved]
  - Pyrexia [Recovered/Resolved]
  - Hypophosphataemia [Recovered/Resolved]

NARRATIVE: CASE EVENT DATE: 20161228
